FAERS Safety Report 5076778-3 (Version None)
Quarter: 2006Q3

REPORT INFORMATION
  Report Type: 
  Country: None (occurrence: None)
  Receive Date: 20060810
  Receipt Date: 20060802
  Transmission Date: 20061208
  Serious: Yes (Other)
  Sender: FDA-Public Use
  Company Number: PHNU2006DE02692

PATIENT
  Age: 45 Year
  Sex: Female

DRUGS (2)
  1. TRILEPTAL [Suspect]
     Dates: start: 19980101, end: 20050101
  2. TRILEPTAL [Suspect]
     Dosage: 450 MG/D (100-0-350)
     Dates: start: 20050101

REACTIONS (8)
  - ARTHRALGIA [None]
  - ARTHROPATHY [None]
  - CYST [None]
  - DIPLOPIA [None]
  - MENORRHAGIA [None]
  - MENSTRUATION IRREGULAR [None]
  - METRORRHAGIA [None]
  - OSTEOARTHRITIS [None]
